FAERS Safety Report 10687699 (Version 1)
Quarter: 2014Q4

REPORT INFORMATION
  Report Type: Spontaneous
  Country: US (occurrence: None)
  Receive Date: 20141230
  Receipt Date: 20141230
  Transmission Date: 20150529
  Serious: Yes (Other)
  Sender: FDA-Public Use
  Company Number: US-2013VAL000060

PATIENT
  Age: 59 Year
  Sex: Male

DRUGS (7)
  1. TOPROL XL [Suspect]
     Active Substance: METOPROLOL SUCCINATE
     Indication: PRODUCT USED FOR UNKNOWN INDICATION
     Dosage: CUT IN HALF
     Dates: start: 20130217
  2. LOPRESSOR [Suspect]
     Active Substance: METOPROLOL TARTRATE
     Indication: PRODUCT USED FOR UNKNOWN INDICATION
     Dosage: 1/2 IN MORNING AND 1/2 AT NIGHT, NOVARTIS PRODUCT
     Dates: start: 2002, end: 201412
  3. LEVOTHYROXINE [Concomitant]
     Active Substance: LEVOTHYROXINE
  4. VITAMINS NOS [Concomitant]
     Active Substance: VITAMINS
  5. ASACOL [Concomitant]
     Active Substance: MESALAMINE
  6. LIPITOR [Concomitant]
     Active Substance: ATORVASTATIN CALCIUM
  7. AMITRIPTYLINE [Concomitant]
     Active Substance: AMITRIPTYLINE

REACTIONS (10)
  - Pharyngeal oedema [None]
  - Product quality issue [None]
  - Adverse event [None]
  - Product substitution issue [None]
  - Heart rate increased [None]
  - Malaise [None]
  - Dry mouth [None]
  - Drug effect incomplete [None]
  - Wrong technique in drug usage process [None]
  - Drug effect decreased [None]

NARRATIVE: CASE EVENT DATE: 20130217
